FAERS Safety Report 21295296 (Version 4)
Quarter: 2023Q1

REPORT INFORMATION
  Report Type: Report from Study
  Country: CA (occurrence: CA)
  Receive Date: 20220905
  Receipt Date: 20230130
  Transmission Date: 20230418
  Serious: Yes (Hospitalization)
  Sender: FDA-Public Use
  Company Number: CA-ABBVIE-22K-028-4527088-00

PATIENT
  Sex: Female

DRUGS (1)
  1. HUMIRA [Suspect]
     Active Substance: ADALIMUMAB
     Indication: Crohn^s disease
     Dosage: FORM STRENGTH 40 MILLIGRAMS
     Route: 058
     Dates: start: 20160921

REACTIONS (8)
  - Intestinal obstruction [Recovering/Resolving]
  - Malaise [Unknown]
  - Stress [Not Recovered/Not Resolved]
  - Inflammatory bowel disease [Unknown]
  - Road traffic accident [Unknown]
  - Hypophagia [Unknown]
  - Onychomycosis [Unknown]
  - Rash papular [Unknown]

NARRATIVE: CASE EVENT DATE: 20180101
